FAERS Safety Report 26194634 (Version 2)
Quarter: 2025Q4

REPORT INFORMATION
  Report Type: Report from Study
  Country: GT (occurrence: GT)
  Receive Date: 20251224
  Receipt Date: 20251230
  Transmission Date: 20260117
  Serious: Yes (Other)
  Sender: JOHNSON AND JOHNSON
  Company Number: GT-BAYER-2025A126511

PATIENT
  Age: 33 Year
  Sex: Female

DRUGS (2)
  1. VENTAVIS [Suspect]
     Active Substance: ILOPROST
     Indication: Pulmonary hypertension
     Dosage: 2 PUFF(S), BID, 10 MCG
     Route: 055
     Dates: start: 20250308, end: 20250924
  2. VENTAVIS [Suspect]
     Active Substance: ILOPROST
     Dosage: UNK
     Route: 055

REACTIONS (10)
  - Syncope [Not Recovered/Not Resolved]
  - Asphyxia [Not Recovered/Not Resolved]
  - Choking [Not Recovered/Not Resolved]
  - Pyrexia [Recovered/Resolved]
  - Influenza [Not Recovered/Not Resolved]
  - Dyspnoea [Not Recovered/Not Resolved]
  - Cough [Not Recovered/Not Resolved]
  - Insomnia [Not Recovered/Not Resolved]
  - Fall [Not Recovered/Not Resolved]
  - Intentional product misuse [Not Recovered/Not Resolved]

NARRATIVE: CASE EVENT DATE: 20250914
